FAERS Safety Report 14138127 (Version 1)
Quarter: 2017Q4

REPORT INFORMATION
  Report Type: Spontaneous
  Country: DE (occurrence: DE)
  Receive Date: 20171027
  Receipt Date: 20171027
  Transmission Date: 20180321
  Serious: Yes (Other)
  Sender: FDA-Public Use
  Company Number: DE-APOPHARMA USA, INC.-2017AP020239

PATIENT

DRUGS (1)
  1. ALKERAN [Suspect]
     Active Substance: MELPHALAN
     Indication: STEM CELL TRANSPLANT
     Route: 065

REACTIONS (4)
  - Cytopenia [Unknown]
  - Adenovirus infection [Recovered/Resolved]
  - Mucosal inflammation [Recovered/Resolved]
  - Transplant dysfunction [Unknown]
